FAERS Safety Report 10737982 (Version 1)
Quarter: 2015Q1

REPORT INFORMATION
  Report Type: Spontaneous
  Country: GB (occurrence: GB)
  Receive Date: 20150126
  Receipt Date: 20150126
  Transmission Date: 20150721
  Serious: Yes (Other)
  Sender: FDA-Public Use
  Company Number: GB-TEVA-535966ISR

PATIENT
  Age: 81 Year
  Sex: Male
  Weight: 78.4 kg

DRUGS (7)
  1. ALLOPURINOL. [Concomitant]
     Active Substance: ALLOPURINOL
  2. THYROXINE [Concomitant]
     Active Substance: LEVOTHYROXINE
  3. ASPIRIN. [Concomitant]
     Active Substance: ASPIRIN
  4. CANDESARTAN [Concomitant]
     Active Substance: CANDESARTAN
  5. RIVAROXABAN [Interacting]
     Active Substance: RIVAROXABAN
     Indication: ATRIAL FIBRILLATION
     Route: 048
     Dates: start: 20141112, end: 20150109
  6. VERAPAMIL [Suspect]
     Active Substance: VERAPAMIL HYDROCHLORIDE
  7. ATORVASTATIN [Concomitant]
     Active Substance: ATORVASTATIN

REACTIONS (3)
  - Haematuria [Recovered/Resolved]
  - Drug interaction [Unknown]
  - Drug level increased [Recovered/Resolved]

NARRATIVE: CASE EVENT DATE: 20150107
